FAERS Safety Report 25026060 (Version 2)
Quarter: 2025Q2

REPORT INFORMATION
  Report Type: Spontaneous
  Country: US (occurrence: US)
  Receive Date: 20250301
  Receipt Date: 20250407
  Transmission Date: 20250716
  Serious: No
  Sender: ALEXION PHARMACEUTICALS
  Company Number: US-AstraZeneca-CH-00818279AP

PATIENT

DRUGS (1)
  1. CALQUENCE [Suspect]
     Active Substance: ACALABRUTINIB
     Route: 065

REACTIONS (6)
  - Product with quality issue administered [Unknown]
  - Multiple allergies [Unknown]
  - Gastrointestinal disorder [Unknown]
  - Pain [Unknown]
  - Discomfort [Unknown]
  - Product physical issue [Unknown]
